FAERS Safety Report 21598577 (Version 2)
Quarter: 2022Q4

REPORT INFORMATION
  Report Type: Spontaneous
  Country: US (occurrence: US)
  Receive Date: 20221115
  Receipt Date: 20221213
  Transmission Date: 20230113
  Serious: No
  Sender: FDA-Public Use
  Company Number: US-PFIZER INC-202201296338

PATIENT
  Age: 58 Year
  Sex: Female
  Weight: 68.027 kg

DRUGS (4)
  1. PAXLOVID [Suspect]
     Active Substance: NIRMATRELVIR\RITONAVIR
     Indication: COVID-19 treatment
     Dosage: UNK (IT HAD PILLS YOU TOOK IN MORNING AND NIGHT)
     Dates: start: 20221104, end: 20221109
  2. SALIX SPP. [Concomitant]
     Dosage: UNK
     Dates: start: 202209
  3. TRULANCE [Concomitant]
     Active Substance: PLECANATIDE
     Indication: Constipation
     Dosage: UNK
     Route: 048
     Dates: start: 20220907
  4. AMOXICILLIN [Concomitant]
     Active Substance: AMOXICILLIN
     Indication: Ear infection
     Dosage: UNK, 3X/DAY (SAME TIME AS PAXLOVID + STOPPED AFTER 10 DAYS- 3X/PD)
     Route: 048
     Dates: start: 20221104, end: 20221113

REACTIONS (8)
  - Sneezing [Not Recovered/Not Resolved]
  - Productive cough [Not Recovered/Not Resolved]
  - Cough [Not Recovered/Not Resolved]
  - Ear discomfort [Not Recovered/Not Resolved]
  - Nasal congestion [Not Recovered/Not Resolved]
  - Feeling abnormal [Not Recovered/Not Resolved]
  - Therapeutic product effect incomplete [Not Recovered/Not Resolved]
  - Inappropriate schedule of product administration [Unknown]

NARRATIVE: CASE EVENT DATE: 20221101
